FAERS Safety Report 4919962-9 (Version None)
Quarter: 2006Q1

REPORT INFORMATION
  Report Type: 
  Country: None (occurrence: None)
  Receive Date: 20060216
  Receipt Date: 20060206
  Transmission Date: 20060701
  Serious: Yes (Death)
  Sender: FDA-Public Use
  Company Number: 2006EU000317

PATIENT
  Age: 69 Year
  Sex: Male

DRUGS (2)
  1. PROGRAF [Suspect]
     Indication: LIVER TRANSPLANT
  2. CORTICOSTEROIDS() [Suspect]
     Indication: LIVER TRANSPLANT

REACTIONS (3)
  - COMPLICATIONS OF TRANSPLANTED LIVER [None]
  - DISEASE RECURRENCE [None]
  - HEPATITIS C VIRUS [None]
